FAERS Safety Report 10490034 (Version 1)
Quarter: 2014Q4

REPORT INFORMATION
  Report Type: Other
  Country: DE (occurrence: DE)
  Receive Date: 20141002
  Receipt Date: 20141002
  Transmission Date: 20150528
  Serious: Yes (Other)
  Sender: FDA-Public Use
  Company Number: DE-MYLANLABS-2014M1004753

PATIENT

DRUGS (7)
  1. DOXEPIN [Suspect]
     Active Substance: DOXEPIN
     Indication: ANXIETY DISORDER
     Dosage: 50 [MG/D ]/ UNTIL AUGUST 2013
     Route: 064
     Dates: end: 201308
  2. VENLAFAXIN DURA 75 RET. [Suspect]
     Active Substance: VENLAFAXINE HYDROCHLORIDE
     Indication: EATING DISORDER
     Dosage: 75 [MG/D ], 0. - 33.6. GESTATIONAL WEEK
     Route: 064
     Dates: start: 20130127, end: 20130921
  3. AMITRIPTYLIN-NEURAXPHARM 100 [Suspect]
     Active Substance: AMITRIPTYLINE
     Dosage: UNK
  4. AMITRIPTYLIN-NEURAXPHARM 100 [Suspect]
     Active Substance: AMITRIPTYLINE
     Indication: DEPRESSION
     Dosage: 100 [MG/D ], 0. - 28.4. GESTATIONAL WEEK
     Route: 064
  5. ZELDOX [Suspect]
     Active Substance: ZIPRASIDONE
     Indication: SCHIZOPHRENIA
     Dosage: 60 [MG/D ], 0. - 33.6. GESTATIONAL WEEK
     Route: 064
     Dates: start: 20130127, end: 20130921
  6. AMITRIPTYLIN DURA 75 RET. [Suspect]
     Active Substance: AMITRIPTYLINE
     Indication: DEPRESSION
     Dosage: 75 [MG/D ], 0. - 33.6. GESTATIONAL WEEK
     Route: 064
     Dates: start: 20130127, end: 20130921
  7. VENLAFAXINE [Suspect]
     Active Substance: VENLAFAXINE HYDROCHLORIDE
     Indication: EATING DISORDER
     Dosage: 150 [MG/D ]
     Route: 064
     Dates: start: 20130127, end: 20130921

REACTIONS (3)
  - Foetal exposure during pregnancy [Unknown]
  - Feeding disorder neonatal [Recovered/Resolved]
  - Neonatal respiratory distress syndrome [Recovered/Resolved]

NARRATIVE: CASE EVENT DATE: 20130921
